FAERS Safety Report 7688078-3 (Version None)
Quarter: 2011Q3

REPORT INFORMATION
  Report Type: 
  Country: None (occurrence: None)
  Receive Date: 20110817
  Receipt Date: 20081007
  Transmission Date: 20111222
  Serious: No
  Sender: FDA-Public Use
  Company Number: US-PFIZER INC-2008086727

PATIENT
  Sex: Female

DRUGS (2)
  1. VISTARIL [Suspect]
  2. TOPAMAX [Concomitant]

REACTIONS (1)
  - FATIGUE [None]
